FAERS Safety Report 6731765-1 (Version None)
Quarter: 2010Q2

REPORT INFORMATION
  Report Type: 
  Country: None (occurrence: None)
  Receive Date: 20100519
  Receipt Date: 20100507
  Transmission Date: 20101027
  Serious: Yes (Other)
  Sender: FDA-Public Use
  Company Number: US-PFIZER INC-2010036036

PATIENT
  Sex: Male
  Weight: 88.435 kg

DRUGS (4)
  1. DEPO-TESTOSTERONE [Suspect]
     Indication: HORMONE REPLACEMENT THERAPY
     Dosage: 200 MG, EVERY 2 WEEKS
     Route: 030
     Dates: start: 19840101
  2. LIPITOR [Concomitant]
     Dosage: UNK
  3. LISINOPRIL [Concomitant]
     Dosage: UNK
  4. ACETYLSALICYLIC ACID [Concomitant]
     Dosage: UNK, DAILY

REACTIONS (4)
  - BURNING SENSATION [None]
  - HYPERTENSION [None]
  - LIMB DISCOMFORT [None]
  - PAIN IN EXTREMITY [None]
